FAERS Safety Report 8578947-4 (Version None)
Quarter: 2012Q3

REPORT INFORMATION
  Report Type: 
  Country: None (occurrence: None)
  Receive Date: 20120808
  Receipt Date: 20120803
  Transmission Date: 20120928
  Serious: No
  Sender: FDA-Public Use
  Company Number: DE-UCBSA-063026

PATIENT
  Sex: Male
  Weight: 85 kg

DRUGS (1)
  1. LACOSAMIDE [Suspect]

REACTIONS (1)
  - BRADYCARDIA [None]
